FAERS Safety Report 24035759 (Version 4)
Quarter: 2024Q4

REPORT INFORMATION
  Report Type: Report from Study
  Country: US (occurrence: US)
  Receive Date: 20240701
  Receipt Date: 20241216
  Transmission Date: 20250114
  Serious: Yes (Other)
  Sender: TAKEDA
  Company Number: US-TAKEDA-2024TUS028098

PATIENT
  Age: 78 Year
  Sex: Male

DRUGS (1)
  1. MARIBAVIR [Suspect]
     Active Substance: MARIBAVIR
     Indication: Cytomegalovirus infection
     Dosage: 1200 MILLIGRAM, BID
     Dates: start: 20240308, end: 20241205

REACTIONS (8)
  - Cytomegalovirus chorioretinitis [Not Recovered/Not Resolved]
  - Haemoglobin decreased [Unknown]
  - Somnolence [Unknown]
  - Drug intolerance [Unknown]
  - Eye infection [Unknown]
  - Fatigue [Unknown]
  - Dysgeusia [Unknown]
  - Off label use [Not Recovered/Not Resolved]

NARRATIVE: CASE EVENT DATE: 20240308
